FAERS Safety Report 14844987 (Version 1)
Quarter: 2018Q2

REPORT INFORMATION
  Report Type: Spontaneous
  Country: US (occurrence: US)
  Receive Date: 20180504
  Receipt Date: 20180504
  Transmission Date: 20180711
  Serious: Yes (Hospitalization)
  Sender: FDA-Public Use
  Company Number: US-009507513-1804USA011837

PATIENT
  Sex: Female

DRUGS (17)
  1. ALBUTEROL SULFATE. [Concomitant]
     Active Substance: ALBUTEROL SULFATE
  2. LEVOTHYROXINE SODIUM. [Concomitant]
     Active Substance: LEVOTHYROXINE SODIUM
  3. PERPHENAZINE. [Concomitant]
     Active Substance: PERPHENAZINE
  4. PROPRANOLOL [Concomitant]
     Active Substance: PROPRANOLOL HYDROCHLORIDE
  5. TRAMADOL HYDROCHLORIDE. [Concomitant]
     Active Substance: TRAMADOL HYDROCHLORIDE
  6. ATORVASTATIN [Concomitant]
     Active Substance: ATORVASTATIN
  7. LISINOPRIL. [Concomitant]
     Active Substance: LISINOPRIL
  8. VITAMINS (UNSPECIFIED) [Concomitant]
     Active Substance: VITAMINS
  9. PROVENTIL [Concomitant]
     Active Substance: ALBUTEROL
  10. BREO ELLIPTA [Concomitant]
     Active Substance: FLUTICASONE FUROATE\VILANTEROL TRIFENATATE
  11. OXYGEN. [Concomitant]
     Active Substance: OXYGEN
     Dosage: WHILE SLEEPING
  12. PREVACID [Concomitant]
     Active Substance: LANSOPRAZOLE
  13. KLONOPIN [Concomitant]
     Active Substance: CLONAZEPAM
  14. BELSOMRA [Suspect]
     Active Substance: SUVOREXANT
     Indication: INSOMNIA
     Dosage: UNK
     Route: 048
     Dates: start: 201708, end: 201709
  15. SEROQUEL [Concomitant]
     Active Substance: QUETIAPINE FUMARATE
  16. CERTA VITE [Concomitant]
  17. WARFARIN [Concomitant]
     Active Substance: WARFARIN

REACTIONS (4)
  - Confusional state [Not Recovered/Not Resolved]
  - Road traffic accident [Not Recovered/Not Resolved]
  - Upper limb fracture [Not Recovered/Not Resolved]
  - Memory impairment [Not Recovered/Not Resolved]

NARRATIVE: CASE EVENT DATE: 2017
